FAERS Safety Report 17865667 (Version 1)
Quarter: 2020Q2

REPORT INFORMATION
  Report Type: Spontaneous
  Country: US (occurrence: US)
  Receive Date: 20200604
  Receipt Date: 20200604
  Transmission Date: 20200714
  Serious: Yes (Hospitalization)
  Sender: FDA-Public Use
  Company Number: None

PATIENT
  Age: 55 Year
  Sex: Male
  Weight: 74 kg

DRUGS (2)
  1. ALBUTEROL/IPRATROPIUM [Suspect]
     Active Substance: ALBUTEROL\IPRATROPIUM
     Indication: UPPER RESPIRATORY TRACT INFECTION
     Route: 055
     Dates: start: 20191204, end: 20191204
  2. LISINOPRIL (LISINOPRIL 20MG TAB) [Suspect]
     Active Substance: LISINOPRIL
     Indication: HYPERTENSION
     Route: 048
     Dates: start: 20191115, end: 20191204

REACTIONS (4)
  - Angioedema [None]
  - Laryngeal oedema [None]
  - Rhinorrhoea [None]
  - Productive cough [None]

NARRATIVE: CASE EVENT DATE: 20191204
